FAERS Safety Report 8220394-9 (Version None)
Quarter: 2012Q1

REPORT INFORMATION
  Report Type: 
  Country: None (occurrence: None)
  Receive Date: 20120320
  Receipt Date: 20120316
  Transmission Date: 20120608
  Serious: Yes (Life-Threatening, Hospitalization)
  Sender: FDA-Public Use
  Company Number: US-JNJFOC-20120214514

PATIENT
  Sex: Female
  Weight: 79.38 kg

DRUGS (2)
  1. XARELTO [Suspect]
     Indication: THROMBOSIS PROPHYLAXIS
     Route: 048
     Dates: start: 20120123, end: 20120128
  2. XARELTO [Suspect]
     Indication: SURGERY
     Route: 048
     Dates: start: 20120123, end: 20120128

REACTIONS (1)
  - PULMONARY EMBOLISM [None]
